FAERS Safety Report 9492304 (Version 1)
Quarter: 2013Q3

REPORT INFORMATION
  Report Type: Spontaneous
  Country: CA (occurrence: CA)
  Receive Date: 20130830
  Receipt Date: 20130830
  Transmission Date: 20140515
  Serious: Yes (Other)
  Sender: FDA-Public Use
  Company Number: PHHY2013CA092629

PATIENT
  Age: 57 Year
  Sex: Female
  Weight: 51 kg

DRUGS (3)
  1. ALENDRONATE [Suspect]
     Route: 048
  2. BETASERON [Concomitant]
  3. SYNTHROID [Concomitant]
     Route: 048

REACTIONS (6)
  - Hypothyroidism [Unknown]
  - Decreased appetite [Unknown]
  - Tachycardia [Unknown]
  - Asthenia [Unknown]
  - Nausea [Unknown]
  - Vomiting [Unknown]
